FAERS Safety Report 12677477 (Version 2)
Quarter: 2016Q3

REPORT INFORMATION
  Report Type: Report from Study
  Country: US (occurrence: US)
  Receive Date: 20160823
  Receipt Date: 20160825
  Transmission Date: 20161109
  Serious: Yes (Hospitalization)
  Sender: FDA-Public Use
  Company Number: US-JNJFOC-20160814359

PATIENT
  Age: 74 Year
  Sex: Female

DRUGS (3)
  1. DILTIAZEM. [Interacting]
     Active Substance: DILTIAZEM
     Indication: ATRIAL FIBRILLATION
  2. ELIQUIS [Interacting]
     Active Substance: APIXABAN
     Indication: ATRIAL FIBRILLATION
  3. IMBRUVICA [Suspect]
     Active Substance: IBRUTINIB
     Indication: PARAPROTEINAEMIA
     Route: 048
     Dates: start: 20151007

REACTIONS (4)
  - Atrial fibrillation [Not Recovered/Not Resolved]
  - Product use issue [Recovered/Resolved]
  - Off label use [Recovered/Resolved]
  - Drug interaction [Unknown]

NARRATIVE: CASE EVENT DATE: 20151007
